FAERS Safety Report 6661052-1 (Version None)
Quarter: 2010Q1

REPORT INFORMATION
  Report Type: 
  Country: None (occurrence: None)
  Receive Date: 20100331
  Receipt Date: 20100319
  Transmission Date: 20100710
  Serious: Yes (Hospitalization)
  Sender: FDA-Public Use
  Company Number: US-ROCHE-683706

PATIENT
  Sex: Female
  Weight: 75.3 kg

DRUGS (28)
  1. BEVACIZUMAB [Suspect]
     Dosage: CYCLE1, DAY 1, FREQUENCY: Q21 DAYS X 6CYCLES
     Route: 042
     Dates: start: 20091019
  2. BEVACIZUMAB [Suspect]
     Dosage: CYCLE 6
     Route: 042
     Dates: start: 20100201
  3. CARBOPLATIN [Suspect]
     Indication: ENDOMETRIAL CANCER
     Dosage: DOSE: 5 AUC, CYCLE1, DAY 1, FREQUENCY: Q21 DAYS X 6CYCLES
     Route: 042
     Dates: start: 20091019
  4. CARBOPLATIN [Suspect]
     Dosage: DOSE: 5 AUC, CYCLE 6
     Route: 042
     Dates: start: 20100201
  5. PACLITAXEL [Suspect]
     Indication: ENDOMETRIAL CANCER
     Dosage: CYCLE1, DAY 1, FREQUENCY: Q21 DAYS X 6C
     Route: 042
     Dates: start: 20091019
  6. PACLITAXEL [Suspect]
     Dosage: CYCLE 6
     Route: 042
     Dates: start: 20100201
  7. AMLODIPINE [Concomitant]
     Dosage: DRUG: AMLIDOPINE
  8. ATENOLOL [Concomitant]
  9. ATENOLOL [Concomitant]
  10. ATENOLOL [Concomitant]
  11. ATENOLOL [Concomitant]
  12. REGLAN [Concomitant]
     Dosage: DOSE: 10 MG QID X3DAYS POST CHEMO, THEN PRN.
  13. REGLAN [Concomitant]
     Dosage: FREQUENCY REPORTED AS Q AM.
  14. REGLAN [Concomitant]
     Dosage: 1 MG AT BEDTIME
  15. DECADRON [Concomitant]
     Dosage: DOSE: 4MG BID FOR 3 DAYS POST CHEMO
     Route: 048
  16. ATIVAN [Concomitant]
     Dosage: DOSE: I MG EVERY 6 HOURS PRN
     Route: 048
  17. POTASSIUM [Concomitant]
  18. MIRALAX [Concomitant]
     Dosage: DOSE: DAILY.
  19. SENNA [Concomitant]
     Dosage: DOSE: SENNA 1 TAB
     Route: 048
  20. COLACE [Concomitant]
     Route: 048
  21. DULCOLAX [Concomitant]
     Dosage: DOSE: 10 MG PRN
  22. GABAPENTIN [Concomitant]
     Dosage: DOSE: 400 MG 2 CAPSULES Q 6 HOURS.
     Route: 048
  23. GABAPENTIN [Concomitant]
     Dosage: FREQUENCY REPORTED AS Q 8 H
     Route: 048
  24. DILAUDID [Concomitant]
     Dosage: DOSE: 8 MG TAB Q 3 HOUR PRN.
  25. ASPIRIN [Concomitant]
  26. PERCOCET [Concomitant]
  27. PERCOCET [Concomitant]
     Dosage: DOSE : 1 TABLET Q 4 H
  28. IBUPROFEN [Concomitant]
     Dosage: FREQUENCY: PER 6 HRS AND PRN

REACTIONS (17)
  - ABDOMINAL PAIN UPPER [None]
  - CONSTIPATION [None]
  - COUGH [None]
  - DEPRESSED LEVEL OF CONSCIOUSNESS [None]
  - DYSPNOEA [None]
  - GROIN PAIN [None]
  - NAUSEA [None]
  - NEURALGIA [None]
  - OEDEMA PERIPHERAL [None]
  - OVERDOSE [None]
  - PAIN [None]
  - PAIN IN EXTREMITY [None]
  - PARAESTHESIA [None]
  - PULMONARY EMBOLISM [None]
  - RESPIRATORY TRACT CONGESTION [None]
  - SCIATICA [None]
  - VOMITING [None]
